FAERS Safety Report 4402381-1 (Version None)
Quarter: 2004Q3

REPORT INFORMATION
  Report Type: 
  Country: None (occurrence: None)
  Receive Date: 20040715
  Receipt Date: 20040629
  Transmission Date: 20050211
  Serious: Yes (Hospitalization, Other)
  Sender: FDA-Public Use
  Company Number: EM2004-0336

PATIENT
  Age: 51 Year
  Sex: Male

DRUGS (10)
  1. L2-7001 (RHIL-2);  ADESLEUKIN [Suspect]
     Indication: HIV INFECTION
     Dosage: 90 MCG , THRICE, SUBCUTAN.;                 0.1MCG
     Route: 058
     Dates: start: 20040112, end: 20040116
  2. TESTOSTERONE [Concomitant]
  3. HYZAAR [Concomitant]
  4. TRIZIVIR [Concomitant]
  5. MOTRIN [Concomitant]
  6. IMODIUM [Concomitant]
  7. DALMANE [Concomitant]
  8. CIALIS [Concomitant]
  9. TYLOX(OXYCODONE TEREPHTHALATE, OXYCODONE HYDROCHLORIDE, PARACETAMOL) [Concomitant]
  10. ZOLOFT [Concomitant]

REACTIONS (15)
  - ASTHENIA [None]
  - BALANCE DISORDER [None]
  - FALL [None]
  - HYPERCALCAEMIA [None]
  - HYPOKALAEMIA [None]
  - HYPOMAGNESAEMIA [None]
  - MANIA [None]
  - MASS [None]
  - METASTASES TO BONE [None]
  - PSYCHOTIC DISORDER [None]
  - PULSE ABSENT [None]
  - PYREXIA [None]
  - SOFT TISSUE DISORDER [None]
  - SYNCOPE [None]
  - THROMBOCYTOPENIA [None]
